FAERS Safety Report 5304768-1 (Version None)
Quarter: 2007Q2

REPORT INFORMATION
  Report Type: 
  Country: None (occurrence: None)
  Receive Date: 20070423
  Receipt Date: 20070412
  Transmission Date: 20071010
  Serious: Yes (Hospitalization)
  Sender: FDA-Public Use
  Company Number: US-GENENTECH-239937

PATIENT
  Age: 19 Year
  Sex: Female

DRUGS (2)
  1. HERCEPTIN [Suspect]
     Indication: BREAST CANCER
     Dosage: UNK, Q3W
  2. RADIATION THERAPY [Concomitant]

REACTIONS (1)
  - ELECTROCARDIOGRAM T WAVE INVERSION [None]
